FAERS Safety Report 5048333-2 (Version None)
Quarter: 2006Q3

REPORT INFORMATION
  Report Type: 
  Country: None (occurrence: None)
  Receive Date: 20060711
  Receipt Date: 20060603
  Transmission Date: 20061208
  Serious: Yes (Hospitalization)
  Sender: FDA-Public Use
  Company Number: JP-BOEHRINGER INGELHEIM PHARMACEUTICALS, INC.-2006-BP-06693NB

PATIENT
  Sex: Female
  Weight: 85 kg

DRUGS (4)
  1. MICARDIS [Suspect]
     Indication: HYPERTENSION
     Route: 048
     Dates: start: 20060411, end: 20060518
  2. URSO [Concomitant]
     Route: 048
     Dates: start: 19960213
  3. ACTOS [Concomitant]
     Indication: DIABETES MELLITUS
     Route: 048
     Dates: start: 20050201
  4. GLUCOBAY [Concomitant]
     Route: 048
     Dates: start: 20050425

REACTIONS (1)
  - CEREBRAL INFARCTION [None]
